FAERS Safety Report 19270507 (Version 1)
Quarter: 2021Q2

REPORT INFORMATION
  Report Type: Spontaneous
  Country: US (occurrence: US)
  Receive Date: 20210518
  Receipt Date: 20210518
  Transmission Date: 20210717
  Serious: No
  Sender: FDA-Public Use
  Company Number: US-TEVA-2021-US-1907323

PATIENT
  Sex: Female

DRUGS (4)
  1. QVAR REDIHALER [Suspect]
     Active Substance: BECLOMETHASONE DIPROPIONATE
     Indication: DYSPNOEA
  2. QVAR REDIHALER [Suspect]
     Active Substance: BECLOMETHASONE DIPROPIONATE
     Indication: COUGH
  3. QVAR REDIHALER [Suspect]
     Active Substance: BECLOMETHASONE DIPROPIONATE
     Indication: WHEEZING
  4. QVAR REDIHALER [Suspect]
     Active Substance: BECLOMETHASONE DIPROPIONATE
     Indication: ASTHMA
     Dosage: 2 PUFFS
     Route: 055
     Dates: start: 20210423, end: 20210426

REACTIONS (11)
  - Swollen tongue [Unknown]
  - Oral candidiasis [Unknown]
  - Wrong technique in product usage process [Unknown]
  - Urticaria [Unknown]
  - Swelling face [Unknown]
  - Asthma [Unknown]
  - Product use in unapproved indication [Unknown]
  - Oral fungal infection [Unknown]
  - Oropharyngeal pain [Not Recovered/Not Resolved]
  - Skin lesion [Not Recovered/Not Resolved]
  - Tonsillar hypertrophy [Unknown]

NARRATIVE: CASE EVENT DATE: 202104
